FAERS Safety Report 4690618-3 (Version None)
Quarter: 2005Q2

REPORT INFORMATION
  Report Type: 
  Country: None (occurrence: None)
  Receive Date: 20050615
  Receipt Date: 20050608
  Transmission Date: 20051028
  Serious: Yes (Death, Life-Threatening)
  Sender: FDA-Public Use
  Company Number: US-BRISTOL-MYERS SQUIBB COMPANY-12997177

PATIENT
  Age: 54 Year
  Sex: Male
  Weight: 136 kg

DRUGS (5)
  1. GLUCOPHAGE [Suspect]
  2. POTASSIUM CHLORIDE [Concomitant]
  3. LIPITOR [Concomitant]
  4. NORVASC [Concomitant]
  5. ACCUPRIL [Concomitant]

REACTIONS (2)
  - DEATH [None]
  - DYSPNOEA [None]
